FAERS Safety Report 6668230-6 (Version None)
Quarter: 2010Q2

REPORT INFORMATION
  Report Type: 
  Country: None (occurrence: None)
  Receive Date: 20100406
  Receipt Date: 20100322
  Transmission Date: 20101027
  Serious: No
  Sender: FDA-Public Use
  Company Number: US-JNJFOC-20100306971

PATIENT
  Sex: Female

DRUGS (3)
  1. DURAGESIC-100 [Suspect]
     Indication: PAIN
     Dosage: NDC# 50458-092-05
     Route: 062
  2. MS CONTIN IMMEDIATE RELEASE [Concomitant]
     Indication: PAIN
     Route: 048
  3. MS CONTIN [Concomitant]
     Indication: PAIN
     Route: 048

REACTIONS (5)
  - DRUG EFFECT DECREASED [None]
  - DRUG INEFFECTIVE [None]
  - INCORRECT DRUG ADMINISTRATION RATE [None]
  - INSOMNIA [None]
  - PALPITATIONS [None]
